FAERS Safety Report 11279638 (Version 2)
Quarter: 2015Q3

REPORT INFORMATION
  Report Type: Spontaneous
  Country: DE (occurrence: DE)
  Receive Date: 20150717
  Receipt Date: 20150813
  Transmission Date: 20151125
  Serious: Yes (Hospitalization, Other)
  Sender: FDA-Public Use
  Company Number: DE-VIIV HEALTHCARE LIMITED-DE2015GSK102533

PATIENT
  Age: 44 Year
  Sex: Male
  Weight: 73 kg

DRUGS (2)
  1. AMPHETAMINES [Suspect]
     Active Substance: AMPHETAMINE
     Dosage: UNK
     Route: 042
     Dates: start: 201504, end: 201504
  2. TRIUMEQ [Suspect]
     Active Substance: ABACAVIR SULFATE\DOLUTEGRAVIR SODIUM\LAMIVUDINE
     Indication: HIV INFECTION
     Dosage: UNK
     Dates: start: 20150212, end: 20150505

REACTIONS (14)
  - Tachycardia [Recovered/Resolved]
  - Substance-induced psychotic disorder [Recovered/Resolved]
  - Chest discomfort [Recovered/Resolved]
  - Social avoidant behaviour [Recovered/Resolved]
  - Insomnia [Unknown]
  - Suicide attempt [Recovered/Resolved]
  - Paranoia [Recovered/Resolved]
  - Depressed mood [Recovered/Resolved]
  - Acute psychosis [Recovered/Resolved]
  - Thinking abnormal [Recovered/Resolved]
  - Toxicity to various agents [Recovered/Resolved]
  - Adjustment disorder [Recovered/Resolved]
  - Anxiety [Recovered/Resolved]
  - Depression [Recovered/Resolved]

NARRATIVE: CASE EVENT DATE: 201502
